FAERS Safety Report 19441541 (Version 8)
Quarter: 2024Q3

REPORT INFORMATION
  Report Type: Spontaneous
  Country: US (occurrence: US)
  Receive Date: 20210621
  Receipt Date: 20240910
  Transmission Date: 20241016
  Serious: Yes (Disabling, Other)
  Sender: ORGANON
  Company Number: US-ORGANON-O2106USA001582

PATIENT
  Sex: Female

DRUGS (2)
  1. SINGULAIR [Suspect]
     Active Substance: MONTELUKAST SODIUM
     Indication: Asthma
     Dosage: UNK
     Route: 048
     Dates: start: 2010, end: 2015
  2. SINGULAIR [Suspect]
     Active Substance: MONTELUKAST SODIUM
     Indication: Hypersensitivity
     Dosage: 1 TABLET, QD
     Route: 048

REACTIONS (40)
  - Neuropsychological symptoms [Not Recovered/Not Resolved]
  - Major depression [Not Recovered/Not Resolved]
  - Bipolar II disorder [Unknown]
  - Autoimmune thyroiditis [Unknown]
  - Suicidal ideation [Recovered/Resolved]
  - Agitation [Not Recovered/Not Resolved]
  - Migraine [Recovering/Resolving]
  - Bipolar I disorder [Unknown]
  - Hypothyroidism [Unknown]
  - Generalised anxiety disorder [Recovering/Resolving]
  - Panic disorder [Unknown]
  - Insomnia [Unknown]
  - Sinus congestion [Unknown]
  - Influenza [Unknown]
  - Oropharyngeal pain [Unknown]
  - Cough [Recovering/Resolving]
  - Dysphagia [Unknown]
  - Lymphadenopathy [Unknown]
  - Lipids increased [Unknown]
  - Blood thyroid stimulating hormone increased [Unknown]
  - Rhinitis allergic [Unknown]
  - White blood cell count increased [Unknown]
  - COVID-19 [Unknown]
  - Fatigue [Unknown]
  - Headache [Unknown]
  - Productive cough [Unknown]
  - Aphonia [Unknown]
  - Paranasal sinus discomfort [Unknown]
  - Dysphonia [Unknown]
  - Rhinorrhoea [Unknown]
  - Ear discomfort [Unknown]
  - Sinusitis [Unknown]
  - Arthralgia [Unknown]
  - Bronchial hyperreactivity [Unknown]
  - Ear pain [Unknown]
  - Night sweats [Unknown]
  - Chills [Unknown]
  - Pyrexia [Unknown]
  - Nausea [Unknown]
  - Upper respiratory tract infection [Unknown]

NARRATIVE: CASE EVENT DATE: 20100101
